FAERS Safety Report 7679124-1 (Version None)
Quarter: 2011Q3

REPORT INFORMATION
  Report Type: 
  Country: None (occurrence: None)
  Receive Date: 20110812
  Receipt Date: 20110808
  Transmission Date: 20111222
  Serious: Yes (Other)
  Sender: FDA-Public Use
  Company Number: GB-CEPHALON-2010004362

PATIENT

DRUGS (1)
  1. PROVIGIL [Suspect]
     Indication: FATIGUE
     Route: 048
     Dates: start: 20100101

REACTIONS (2)
  - COGNITIVE DISORDER [None]
  - MOOD ALTERED [None]
